FAERS Safety Report 7770450-4 (Version None)
Quarter: 2011Q3

REPORT INFORMATION
  Report Type: 
  Country: None (occurrence: None)
  Receive Date: 20110922
  Receipt Date: 20100817
  Transmission Date: 20111222
  Serious: No
  Sender: FDA-Public Use
  Company Number: US-ASTRAZENECA-2010SE38788

PATIENT
  Age: 61 Year
  Sex: Male
  Weight: 97.5 kg

DRUGS (7)
  1. SEROQUEL [Suspect]
     Indication: DEPRESSION
     Route: 048
     Dates: start: 20081101
  2. LISINOPRIL [Concomitant]
  3. SEROQUEL [Suspect]
     Route: 048
     Dates: start: 20100401
  4. HYDROCHLOROTHIAZIDE [Concomitant]
  5. ATENOLOL [Concomitant]
  6. SEROQUEL [Suspect]
     Route: 048
     Dates: start: 20100701
  7. LITHIUM CARBONATE [Concomitant]

REACTIONS (7)
  - DEPRESSION [None]
  - SOCIAL AVOIDANT BEHAVIOUR [None]
  - DRUG DOSE OMISSION [None]
  - INCORRECT DOSE ADMINISTERED [None]
  - FEELING OF DESPAIR [None]
  - WRONG TECHNIQUE IN DRUG USAGE PROCESS [None]
  - INAPPROPRIATE SCHEDULE OF DRUG ADMINISTRATION [None]
